FAERS Safety Report 9657458 (Version 3)
Quarter: 2013Q4

REPORT INFORMATION
  Report Type: Spontaneous
  Country: US (occurrence: US)
  Receive Date: 20131030
  Receipt Date: 20131205
  Transmission Date: 20140711
  Serious: Yes (Other)
  Sender: FDA-Public Use
  Company Number: US-PFIZER INC-2013309341

PATIENT
  Age: 64 Year
  Sex: Male
  Weight: 91.16 kg

DRUGS (4)
  1. LOPID [Suspect]
     Indication: HYPERLIPIDAEMIA
     Dosage: 1200 MG (BY TAKING 2 TABLETS OF 600MG), 2X/DAY
     Route: 048
     Dates: start: 2005, end: 201310
  2. LOPID [Suspect]
     Indication: HYPERTRIGLYCERIDAEMIA
  3. LOPID [Suspect]
     Indication: HYPERGLYCAEMIA
  4. LOPID [Suspect]
     Indication: PANCREATITIS

REACTIONS (6)
  - Amyotrophic lateral sclerosis [Not Recovered/Not Resolved]
  - Drug ineffective [Unknown]
  - Dyspepsia [Not Recovered/Not Resolved]
  - Hypersensitivity [Not Recovered/Not Resolved]
  - Sleep disorder [Not Recovered/Not Resolved]
  - Pain [Not Recovered/Not Resolved]
